FAERS Safety Report 13460390 (Version 1)
Quarter: 2017Q2

REPORT INFORMATION
  Report Type: Report from Study
  Country: JP (occurrence: JP)
  Receive Date: 20170420
  Receipt Date: 20170420
  Transmission Date: 20170830
  Serious: Yes (Hospitalization, Other)
  Sender: FDA-Public Use
  Company Number: JP-JNJFOC-20160712076

PATIENT
  Age: 37 Year
  Sex: Male
  Weight: 105 kg

DRUGS (5)
  1. YONDELIS [Suspect]
     Active Substance: TRABECTEDIN
     Indication: MYXOID LIPOSARCOMA
     Dosage: 24 HOURS INFUSION; CYCLE 2
     Route: 041
     Dates: start: 20160614
  2. ALOXI [Concomitant]
     Active Substance: PALONOSETRON HYDROCHLORIDE
     Indication: PREMEDICATION
     Route: 065
     Dates: start: 20160524
  3. YONDELIS [Suspect]
     Active Substance: TRABECTEDIN
     Indication: MYXOID LIPOSARCOMA
     Dosage: 24 HOURS INFUSION; CYCLE 2
     Route: 041
     Dates: start: 20160705
  4. DEXAMETHASONE. [Concomitant]
     Active Substance: DEXAMETHASONE
     Indication: PREMEDICATION
     Route: 065
     Dates: start: 20160524
  5. YONDELIS [Suspect]
     Active Substance: TRABECTEDIN
     Indication: MYXOID LIPOSARCOMA
     Dosage: 24 HOURS INFUSION, CYCLE 1
     Route: 041
     Dates: start: 20160524

REACTIONS (5)
  - Pulmonary oedema [Recovered/Resolved]
  - Vomiting [Recovered/Resolved]
  - Cardiac failure [Recovering/Resolving]
  - Bone marrow failure [Recovered/Resolved]
  - Decreased appetite [Recovered/Resolved]

NARRATIVE: CASE EVENT DATE: 20160613
